FAERS Safety Report 4861903-7 (Version None)
Quarter: 2005Q4

REPORT INFORMATION
  Report Type: 
  Country: None (occurrence: None)
  Receive Date: 20051129
  Receipt Date: 20050822
  Transmission Date: 20060501
  Serious: Yes (Disabling)
  Sender: FDA-Public Use
  Company Number: WAES 0508USA03677

PATIENT
  Age: 47 Year
  Sex: Female
  Weight: 80.7403 kg

DRUGS (4)
  1. ZETIA [Suspect]
     Indication: BLOOD CHOLESTEROL INCREASED
     Dosage: 10MG, DAILY; PO
     Route: 048
     Dates: start: 20050608, end: 20050906
  2. ZETIA [Suspect]
     Indication: HYPERLIPIDAEMIA
     Dosage: 10MG, DAILY; PO
     Route: 048
     Dates: start: 20050608, end: 20050906
  3. NORVASC [Concomitant]
  4. SYNTHROID [Concomitant]

REACTIONS (2)
  - ABDOMINAL PAIN [None]
  - SWOLLEN TONGUE [None]
